FAERS Safety Report 5225396-2 (Version None)
Quarter: 2007Q1

REPORT INFORMATION
  Report Type: 
  Country: None (occurrence: None)
  Receive Date: 20070131
  Receipt Date: 20070115
  Transmission Date: 20070707
  Serious: Yes (Other)
  Sender: FDA-Public Use
  Company Number: US-SHR-US-2007-001246

PATIENT
  Age: 37 Year
  Sex: Female
  Weight: 46 kg

DRUGS (4)
  1. BETASERON [Suspect]
     Dosage: 4 MIU, EVERY 2D
     Route: 058
     Dates: start: 20061011, end: 20061218
  2. BETASERON [Suspect]
     Dosage: 4 MIU, 1 DOSE
     Dates: start: 20061226, end: 20061226
  3. BETASERON [Suspect]
     Dosage: 4 MIU, EVERY 2D
     Route: 058
     Dates: start: 20070102, end: 20070113
  4. TYLENOL [Concomitant]

REACTIONS (12)
  - ABDOMINAL PAIN UPPER [None]
  - ANAEMIA [None]
  - ANOREXIA [None]
  - DRUG HYPERSENSITIVITY [None]
  - DYSPNOEA [None]
  - GASTROINTESTINAL PAIN [None]
  - HYPOAESTHESIA [None]
  - INJECTION SITE PRURITUS [None]
  - MALAISE [None]
  - NAUSEA [None]
  - VISUAL DISTURBANCE [None]
  - WEIGHT DECREASED [None]
